FAERS Safety Report 10185753 (Version 3)
Quarter: 2014Q2

REPORT INFORMATION
  Report Type: Report from Study
  Country: NL (occurrence: NL)
  Receive Date: 20140521
  Receipt Date: 20140522
  Transmission Date: 20141212
  Serious: Yes (Hospitalization)
  Sender: FDA-Public Use
  Company Number: PHHO2014NL000954

PATIENT
  Sex: 0

DRUGS (11)
  1. AFINITOR [Suspect]
     Indication: CLEAR CELL RENAL CELL CARCINOMA
     Dosage: UNK UNK, QD
     Route: 048
     Dates: start: 20140218
  2. VOTRIENT [Suspect]
     Indication: CLEAR CELL RENAL CELL CARCINOMA
     Dosage: 800 MG, QD
     Route: 048
     Dates: start: 20131224, end: 20131224
  3. VOTRIENT [Suspect]
     Dosage: 600 MG, QD
     Route: 048
     Dates: start: 20140127, end: 20140418
  4. METFORMIN [Concomitant]
     Dosage: 500 MG, TID
  5. VILDAGLIPTIN [Concomitant]
     Dosage: 50 MG, BID
  6. ATORVASTATIN [Concomitant]
     Dosage: 10 MG, QD
  7. ACETYLSALICYLIC ACID [Concomitant]
     Dosage: 1X80
  8. RANITIDINE [Concomitant]
     Dosage: 150 MG, BID
     Dates: start: 20140113
  9. SOLIFENACIN [Concomitant]
     Dosage: 5 MG, QD
  10. MACROGOL [Concomitant]
     Dosage: 1 X 1, UNK
     Dates: start: 20140515
  11. ALFUZOSIN [Concomitant]
     Dosage: 10 MG, QD

REACTIONS (4)
  - Pyrexia [Unknown]
  - Malaise [Unknown]
  - Hepatotoxicity [Unknown]
  - Asthenia [Unknown]
